FAERS Safety Report 7053964-4 (Version None)
Quarter: 2010Q4

REPORT INFORMATION
  Report Type: 
  Country: None (occurrence: None)
  Receive Date: 20101020
  Receipt Date: 20101013
  Transmission Date: 20110411
  Serious: Yes (Death)
  Sender: FDA-Public Use
  Company Number: US-JNJCH-2008001147

PATIENT
  Sex: Male

DRUGS (7)
  1. DIPHENHYDRAMINE HCL [Suspect]
     Dosage: TEXT:UNSPECIFIED
     Route: 048
  2. IBUPROFEN [Suspect]
     Dosage: TEXT:UNSPECIFIED
     Route: 048
  3. OXYCODONE HCL [Suspect]
     Dosage: TEXT:UNSPECIFIED
     Route: 048
  4. CARISOPRODOL [Suspect]
     Dosage: TEXT:UNSPECIFIED
     Route: 048
  5. HYDROCODONE [Suspect]
     Dosage: TEXT:UNSPECIFIED
     Route: 048
  6. WARFARIN [Suspect]
     Dosage: TEXT:UNSPECIFIED
     Route: 048
  7. PREGABALIN [Suspect]
     Dosage: TEXT:UNSPECIFIED
     Route: 048

REACTIONS (1)
  - DRUG TOXICITY [None]
